FAERS Safety Report 9362123 (Version 1)
Quarter: 2013Q2

REPORT INFORMATION
  Report Type: Spontaneous
  Country: NL (occurrence: NL)
  Receive Date: 20130621
  Receipt Date: 20130621
  Transmission Date: 20140414
  Serious: Yes (Hospitalization)
  Sender: FDA-Public Use
  Company Number: NL-ASTRAZENECA-2013SE46414

PATIENT
  Age: 62 Year
  Sex: Female

DRUGS (11)
  1. OMEPRAZOL [Suspect]
     Indication: PROPHYLAXIS AGAINST GASTROINTESTINAL ULCER
     Route: 048
     Dates: start: 20120501, end: 20130611
  2. NIFEDIPINE TABLET RETARD 20MG [Concomitant]
     Route: 048
  3. ACETYLSALICYLZUUR DISPERTABLET 80MG [Concomitant]
     Route: 048
  4. HYDROCHLOORTHIAZIDE TABLET 12,5MG [Concomitant]
     Route: 048
  5. METOPROLOL TARTRAAT [Concomitant]
     Route: 048
  6. LISINOPRIL TABLET 10MG [Concomitant]
     Route: 048
  7. SIMVASTATINE TABLET FO 40MG [Concomitant]
     Route: 048
  8. PAROXETINE TABLET FO 20MG (ALS HCL-0-WATER) [Concomitant]
     Route: 048
  9. NASONEX NEUSSPRAY 50MCG/DO 140DO [Concomitant]
     Route: 045
  10. SEREVENT AEROSOL 25MCG/DO CFKVR SPBS 120DO + INH [Concomitant]
     Route: 055
  11. FLIXOTIDE AER CFKVR 250MCG/DO SPBS 120 DO + INHAL [Concomitant]
     Route: 055

REACTIONS (2)
  - Hypomagnesaemia [Recovering/Resolving]
  - Hypocalcaemia [Unknown]
